FAERS Safety Report 4355632-6 (Version None)
Quarter: 2004Q2

REPORT INFORMATION
  Report Type: 
  Country: None (occurrence: None)
  Receive Date: 20040505
  Receipt Date: 20040423
  Transmission Date: 20050107
  Serious: Yes (Hospitalization)
  Sender: FDA-Public Use
  Company Number: US-JNJFOC-20040405789

PATIENT
  Age: 77 Year
  Sex: Female
  Weight: 72.5755 kg

DRUGS (5)
  1. ULTRACET [Suspect]
     Indication: OSTEOARTHRITIS
     Dosage: 1 DOSE(S), 1 IN 1 DAY, ORAL
     Route: 048
     Dates: start: 20030101
  2. HYZAAR [Concomitant]
  3. ARIMIDEX [Concomitant]
  4. FERROUS SULFATE TAB [Concomitant]
  5. NORVASC [Concomitant]

REACTIONS (1)
  - HIP ARTHROPLASTY [None]
